FAERS Safety Report 13123577 (Version 1)
Quarter: 2017Q1

REPORT INFORMATION
  Report Type: Spontaneous
  Country: US (occurrence: US)
  Receive Date: 20170117
  Receipt Date: 20170117
  Transmission Date: 20170428
  Serious: Yes (Other)
  Sender: FDA-Public Use
  Company Number: US-THE RITEDOSE CORPORATION-2017RIT000006

PATIENT
  Age: 69 Year
  Sex: Female
  Weight: 55.78 kg

DRUGS (6)
  1. TELMISARTAN. [Concomitant]
     Active Substance: TELMISARTAN
     Dosage: UNK
  2. SYMBICORT [Concomitant]
     Active Substance: BUDESONIDE\FORMOTEROL FUMARATE DIHYDRATE
     Dosage: UNK
  3. SPIRIVA [Concomitant]
     Active Substance: TIOTROPIUM BROMIDE MONOHYDRATE
     Dosage: UNK
  4. METHYLPREDNISOLONE. [Suspect]
     Active Substance: METHYLPREDNISOLONE
     Indication: DYSPNOEA
     Dosage: UNK
     Route: 042
     Dates: start: 20161109, end: 20161109
  5. VENTOLIN [Concomitant]
     Active Substance: ALBUTEROL SULFATE
     Dosage: UNK
  6. IPRATROPIUM BROMIDE AND ALBUTEROL SULFATE [Suspect]
     Active Substance: ALBUTEROL SULFATE\IPRATROPIUM BROMIDE
     Indication: DYSPNOEA
     Dosage: UNK
     Dates: start: 20161109, end: 20161109

REACTIONS (7)
  - Dyskinesia [Recovering/Resolving]
  - Paraesthesia [Recovering/Resolving]
  - Anxiety [Recovering/Resolving]
  - Blood pressure systolic increased [Recovering/Resolving]
  - Seizure [Recovered/Resolved]
  - Tremor [Recovering/Resolving]
  - Tachycardia [Recovering/Resolving]

NARRATIVE: CASE EVENT DATE: 20161109
